FAERS Safety Report 23726631 (Version 1)
Quarter: 2024Q2

REPORT INFORMATION
  Report Type: Spontaneous
  Country: US (occurrence: US)
  Receive Date: 20240410
  Receipt Date: 20240410
  Transmission Date: 20240716
  Serious: No
  Sender: FDA-Public Use
  Company Number: US-ALKERMES INC.-ALK-2024-000901

PATIENT
  Sex: Female

DRUGS (3)
  1. VIVITROL [Suspect]
     Active Substance: NALTREXONE
     Indication: Essential hypertension
     Dosage: 380 MILLIGRAM, Q4WK
     Route: 030
  2. VIVITROL [Suspect]
     Active Substance: NALTREXONE
     Indication: Anxiety disorder
  3. VIVITROL [Suspect]
     Active Substance: NALTREXONE
     Indication: Depression

REACTIONS (2)
  - Off label use [Unknown]
  - Influenza [Recovering/Resolving]
